FAERS Safety Report 23334221 (Version 5)
Quarter: 2024Q1

REPORT INFORMATION
  Report Type: Spontaneous
  Country: US (occurrence: US)
  Receive Date: 20231223
  Receipt Date: 20240213
  Transmission Date: 20240410
  Serious: No
  Sender: FDA-Public Use
  Company Number: US-JNJFOC-20231250579

PATIENT
  Age: 78 Year
  Sex: Male

DRUGS (2)
  1. BALVERSA [Suspect]
     Active Substance: ERDAFITINIB
     Indication: Metastatic carcinoma of the bladder
     Route: 048
     Dates: start: 20231125
  2. BALVERSA [Suspect]
     Active Substance: ERDAFITINIB
     Dosage: WITH OR WITHOUT FOOD, DO NOT CRUSH, CHEW, OR DISSOLVE, SWALLOW TABLET WHOLE
     Route: 048

REACTIONS (4)
  - Hyperphosphataemia [Unknown]
  - Eye swelling [Unknown]
  - Visual impairment [Unknown]
  - Nodule [Unknown]

NARRATIVE: CASE EVENT DATE: 20231215
